FAERS Safety Report 17633548 (Version 6)
Quarter: 2020Q4

REPORT INFORMATION
  Report Type: Report from Study
  Country: US (occurrence: US)
  Receive Date: 20200406
  Receipt Date: 20201214
  Transmission Date: 20210113
  Serious: No
  Sender: FDA-Public Use
  Company Number: US-BIOVITRUM-2020US1589

PATIENT
  Age: 38 Year
  Sex: Female

DRUGS (1)
  1. KINERET [Suspect]
     Active Substance: ANAKINRA
     Indication: CRYOPYRIN ASSOCIATED PERIODIC SYNDROME
     Route: 058
     Dates: start: 20190530

REACTIONS (30)
  - Tenderness [Unknown]
  - Maternal exposure during pregnancy [Unknown]
  - Abdominal pain [Unknown]
  - Musculoskeletal discomfort [Unknown]
  - Rash [Unknown]
  - Headache [Unknown]
  - Off label use [Unknown]
  - Oral pain [Unknown]
  - Cough [Unknown]
  - Nausea [Unknown]
  - Dry eye [Unknown]
  - Vomiting [Unknown]
  - Joint stiffness [Unknown]
  - Pain [Unknown]
  - Joint swelling [Unknown]
  - Peripheral swelling [Unknown]
  - Dyspnoea [Unknown]
  - Asthenia [Unknown]
  - Paraesthesia [Unknown]
  - Joint range of motion decreased [Unknown]
  - Anaemia [Unknown]
  - Product dose omission issue [Unknown]
  - Fatigue [Unknown]
  - Back pain [Unknown]
  - Hypoaesthesia [Unknown]
  - Influenza [Unknown]
  - Diarrhoea [Unknown]
  - Insomnia [Unknown]
  - Depression [Unknown]
  - Crying [Unknown]

NARRATIVE: CASE EVENT DATE: 20190530
